FAERS Safety Report 5598263-2 (Version None)
Quarter: 2007Q4

REPORT INFORMATION
  Report Type: 
  Country: None (occurrence: None)
  Receive Date: 20071226
  Receipt Date: 20070929
  Transmission Date: 20080405
  Serious: No
  Sender: FDA-Public Use
  Company Number: 2007PV033511

PATIENT
  Age: 47 Year
  Sex: Female

DRUGS (5)
  1. SYMLIN [Suspect]
     Indication: TYPE 2 DIABETES MELLITUS
     Dosage: 60 MCG;TID;SC;120 MCG;BID;SC
     Route: 058
     Dates: start: 20070925, end: 20071011
  2. SYMLIN [Suspect]
     Indication: TYPE 2 DIABETES MELLITUS
     Dosage: 60 MCG;TID;SC;120 MCG;BID;SC
     Route: 058
     Dates: start: 20071012
  3. GLIMEPIRIDE [Concomitant]
  4. HUMALOG [Concomitant]
  5. LANTUS [Concomitant]

REACTIONS (3)
  - ABDOMINAL DISTENSION [None]
  - HEADACHE [None]
  - NAUSEA [None]
